FAERS Safety Report 4334566-7 (Version None)
Quarter: 2004Q2

REPORT INFORMATION
  Report Type: 
  Country: None (occurrence: None)
  Receive Date: 20040407
  Receipt Date: 20040329
  Transmission Date: 20050107
  Serious: Yes (Other)
  Sender: FDA-Public Use
  Company Number: JP-ROCHE-363379

PATIENT
  Age: 74 Year
  Sex: Male

DRUGS (4)
  1. TAMIFLU [Suspect]
     Route: 048
     Dates: start: 20040317, end: 20040320
  2. CHINESE HERBAL THERAPY [Concomitant]
     Dosage: EXACT DRUG NAME REPORTED AS MAOHTO (CHINESE HERBAL MEDICINE).
     Route: 048
     Dates: start: 20040317, end: 20040321
  3. TAGAMET [Concomitant]
     Route: 048
  4. ASPIRIN [Concomitant]
     Route: 048

REACTIONS (1)
  - DEMENTIA [None]
